FAERS Safety Report 8398596-0 (Version None)
Quarter: 2012Q2

REPORT INFORMATION
  Report Type: 
  Country: None (occurrence: None)
  Receive Date: 20120531
  Receipt Date: 20120517
  Transmission Date: 20120825
  Serious: Yes (Other)
  Sender: FDA-Public Use
  Company Number: US-ROCHE-1069977

PATIENT
  Sex: Female
  Weight: 46.762 kg

DRUGS (6)
  1. PROZAC [Suspect]
     Indication: DEPRESSION
  2. VALIUM [Suspect]
     Indication: DEPRESSION
  3. SOMA [Concomitant]
     Indication: BACK DISORDER
  4. XANAX [Suspect]
     Indication: ANXIETY
  5. XANAX [Suspect]
     Indication: PANIC ATTACK
     Route: 048
  6. VISTARIL [Suspect]
     Indication: PANIC ATTACK

REACTIONS (11)
  - PANIC ATTACK [None]
  - SUICIDAL IDEATION [None]
  - ANXIETY [None]
  - INSOMNIA [None]
  - ROAD TRAFFIC ACCIDENT [None]
  - FEAR [None]
  - DRUG INEFFECTIVE [None]
  - NERVOUSNESS [None]
  - SHOCK [None]
  - INTENTIONAL DRUG MISUSE [None]
  - WRONG TECHNIQUE IN DRUG USAGE PROCESS [None]
